FAERS Safety Report 9550279 (Version 1)
Quarter: 2013Q3

REPORT INFORMATION
  Report Type: Spontaneous
  Country: US (occurrence: US)
  Receive Date: 20130924
  Receipt Date: 20130924
  Transmission Date: 20140515
  Serious: No
  Sender: FDA-Public Use
  Company Number: US-SANOFI-AVENTIS-2013SA070609

PATIENT
  Age: 54 Year
  Sex: Female

DRUGS (1)
  1. AUBAGIO [Suspect]
     Indication: MULTIPLE SCLEROSIS
     Dosage: PRODUCT STARTED SIX MONTHS AGO. PRODUCT STOPED ON 02-JUL-2013 OR 03-JUL-2013.
     Route: 048

REACTIONS (5)
  - Pain of skin [Not Recovered/Not Resolved]
  - Palpitations [Not Recovered/Not Resolved]
  - Diarrhoea [Not Recovered/Not Resolved]
  - Nausea [Not Recovered/Not Resolved]
  - Alopecia [Not Recovered/Not Resolved]
